FAERS Safety Report 16652988 (Version 5)
Quarter: 2021Q1

REPORT INFORMATION
  Report Type: Spontaneous
  Country: US (occurrence: US)
  Receive Date: 20190731
  Receipt Date: 20210324
  Transmission Date: 20210419
  Serious: Yes (Hospitalization, Other)
  Sender: FDA-Public Use
  Company Number: US-TEVA-2019-US-1084409

PATIENT
  Age: 59 Year
  Sex: Female
  Weight: 91 kg

DRUGS (36)
  1. VALSARTAN TORRENT PHARMACEUTICALS [Suspect]
     Active Substance: VALSARTAN
     Indication: HYPERTENSION
     Route: 048
     Dates: start: 20150130
  2. COREG [Concomitant]
     Active Substance: CARVEDILOL
     Route: 048
     Dates: end: 20161227
  3. DESOWEN [Concomitant]
     Active Substance: DESONIDE
     Dosage: 60G
     Route: 061
     Dates: start: 20130812, end: 20170713
  4. PERCOCET [Concomitant]
     Active Substance: ACETAMINOPHEN\OXYCODONE HYDROCHLORIDE
     Indication: PAIN PROPHYLAXIS
     Dosage: 5/325 MG TAKE 1?2 TABLETS BY MOUTH EVERY 4 HOURS AS NEEDED FOR PAIN
     Route: 048
     Dates: start: 20170218, end: 20170413
  5. VALSARTAN SOLCO HEALTHCARE [Suspect]
     Active Substance: VALSARTAN
     Indication: HYPERTENSION
     Route: 048
     Dates: start: 20160524, end: 20180801
  6. DIOVAN [Suspect]
     Active Substance: VALSARTAN
     Indication: HYPERTENSION
     Route: 048
     Dates: start: 20120423, end: 20180923
  7. VITAMIN D3 2000 U [Concomitant]
     Active Substance: CHOLECALCIFEROL
     Route: 048
  8. CRESTOR [Concomitant]
     Active Substance: ROSUVASTATIN CALCIUM
     Dosage: TAKE 40 MG BY MOUTH EVERY EVENING
     Route: 048
     Dates: start: 20180104
  9. FLONASE [Concomitant]
     Active Substance: FLUTICASONE PROPIONATE
     Indication: PROPHYLAXIS
     Dosage: 1 SPRAY BY EACH NASAL ROUTE DAILY AS NEEDED FOR RHINITIS OR ALLERGIES? EACH NOSTRIL
     Route: 045
     Dates: start: 20170209, end: 20170413
  10. SYNTHROID [Concomitant]
     Active Substance: LEVOTHYROXINE SODIUM
     Route: 048
     Dates: start: 20170102
  11. COREG [Concomitant]
     Active Substance: CARVEDILOL
     Route: 048
     Dates: start: 20161217
  12. NORVASC [Concomitant]
     Active Substance: AMLODIPINE BESYLATE
     Route: 048
     Dates: start: 20190813
  13. VALSARTAN  QUALITEST PHARMACEUTICALS [Suspect]
     Active Substance: VALSARTAN
     Indication: HYPERTENSION
     Route: 048
  14. SYNTHROID [Concomitant]
     Active Substance: LEVOTHYROXINE SODIUM
     Route: 048
     Dates: start: 20161205, end: 20161227
  15. BIAXIN [Concomitant]
     Active Substance: CLARITHROMYCIN
     Route: 048
     Dates: start: 20161226, end: 20170123
  16. LEVAQUIN [Concomitant]
     Active Substance: LEVOFLOXACIN
     Route: 048
     Dates: start: 20150202, end: 20161227
  17. TYLENOL [Concomitant]
     Active Substance: ACETAMINOPHEN
     Indication: PAIN PROPHYLAXIS
     Route: 048
     Dates: start: 20180210
  18. BENICAR [Concomitant]
     Active Substance: OLMESARTAN MEDOXOMIL
     Route: 048
     Dates: start: 20200217, end: 20210216
  19. VALSARTAN ACTAVIS PHARMA [Suspect]
     Active Substance: VALSARTAN
     Indication: HYPERTENSION
     Route: 048
     Dates: start: 20150116, end: 20150812
  20. VALSARTAN SANDOZ [Suspect]
     Active Substance: VALSARTAN
     Indication: HYPERTENSION
     Route: 048
     Dates: start: 20140730
  21. KLOR?CON M20 [Concomitant]
     Active Substance: POTASSIUM CHLORIDE
     Route: 048
     Dates: end: 20190610
  22. SYNTHROID [Concomitant]
     Active Substance: LEVOTHYROXINE SODIUM
     Dosage: 100MCG
     Route: 048
  23. AMOXIL [Concomitant]
     Active Substance: AMOXICILLIN
     Route: 048
     Dates: start: 20161226, end: 20170123
  24. ZYRTEC [Concomitant]
     Active Substance: CETIRIZINE HYDROCHLORIDE
     Route: 048
     Dates: end: 20170413
  25. COLACE [Concomitant]
     Active Substance: DOCUSATE SODIUM
     Route: 048
     Dates: start: 20170218, end: 20170413
  26. VALSARTAN ACTAVIS PHARMA [Suspect]
     Active Substance: VALSARTAN
     Route: 048
     Dates: start: 20150812, end: 20160217
  27. LASIX [Concomitant]
     Active Substance: FUROSEMIDE
     Route: 048
     Dates: start: 20200608
  28. ZETIA [Concomitant]
     Active Substance: EZETIMIBE
     Route: 048
     Dates: start: 20200706
  29. LIPITOR [Concomitant]
     Active Substance: ATORVASTATIN CALCIUM
     Dosage: EVERY EVENING
     Route: 048
     Dates: start: 20161217, end: 20170508
  30. PROMETHAZINE?DM [Concomitant]
     Dosage: 6.25?15 MG/5 ML? TAKE ONE TEASPOON (5ML) BY MOUTH THREE TIMES DAILY
     Route: 048
     Dates: start: 20161220, end: 20170413
  31. COUMADIN [Concomitant]
     Active Substance: WARFARIN SODIUM
     Route: 048
  32. LASIX [Concomitant]
     Active Substance: FUROSEMIDE
     Dosage: 40MG
     Route: 048
     Dates: end: 20190610
  33. VYTORIN [Concomitant]
     Active Substance: EZETIMIBE\SIMVASTATIN
     Dosage: 10?40MG
     Route: 048
     Dates: end: 20161227
  34. TEKTURNA [Concomitant]
     Active Substance: ALISKIREN HEMIFUMARATE
     Dosage: 150MG AND 300MG
  35. NITROSTAT [Concomitant]
     Active Substance: NITROGLYCERIN
     Dosage: PLACE 0.4 MG UNDER THE TONGUE EVERY 5 MINUTES AS NEEDED
     Route: 060
  36. LOVENOX [Concomitant]
     Active Substance: ENOXAPARIN SODIUM
     Route: 058

REACTIONS (1)
  - Renal cell carcinoma [Recovered/Resolved]
